FAERS Safety Report 5071164-4 (Version None)
Quarter: 2006Q3

REPORT INFORMATION
  Report Type: 
  Country: None (occurrence: None)
  Receive Date: 20060804
  Receipt Date: 20060315
  Transmission Date: 20061208
  Serious: No
  Sender: FDA-Public Use
  Company Number: US-GLAXOSMITHKLINE-A0597599A

PATIENT

DRUGS (1)
  1. NICORETTE [Suspect]
     Indication: TOBACCO USER

REACTIONS (1)
  - INTENTIONAL DRUG MISUSE [None]
